FAERS Safety Report 14895343 (Version 1)
Quarter: 2018Q2

REPORT INFORMATION
  Report Type: Spontaneous
  Country: US (occurrence: US)
  Receive Date: 20180427
  Receipt Date: 20180427
  Transmission Date: 20180711
  Serious: Yes (Hospitalization, Other)
  Sender: FDA-Public Use
  Company Number: None

PATIENT
  Age: 62 Year
  Sex: Female
  Weight: 52.65 kg

DRUGS (2)
  1. XARELTO [Suspect]
     Active Substance: RIVAROXABAN
     Indication: ATRIAL FIBRILLATION
     Dosage: ?          QUANTITY:1 TABLET(S);?
     Route: 048
     Dates: start: 20171021, end: 20171117
  2. ATENOLOL. [Suspect]
     Active Substance: ATENOLOL

REACTIONS (4)
  - Thrombosis [None]
  - Angiokeratoma [None]
  - Ureteral disorder [None]
  - Haemorrhage [None]

NARRATIVE: CASE EVENT DATE: 20171116
